FAERS Safety Report 6030409-4 (Version None)
Quarter: 2009Q1

REPORT INFORMATION
  Report Type: 
  Country: None (occurrence: None)
  Receive Date: 20090106
  Receipt Date: 20090106
  Transmission Date: 20090719
  Serious: Yes (Hospitalization)
  Sender: FDA-Public Use
  Company Number: None

PATIENT
  Sex: Female
  Weight: 46.6 kg

DRUGS (2)
  1. CARBOPLATIN [Suspect]
     Dosage: 398 MG
     Dates: end: 20081203
  2. TAXOL [Suspect]
     Dosage: 263 MG
     Dates: end: 20081203

REACTIONS (5)
  - BODY TEMPERATURE DECREASED [None]
  - DIZZINESS [None]
  - HAEMATOCRIT DECREASED [None]
  - HAEMOGLOBIN DECREASED [None]
  - HEART RATE INCREASED [None]
